FAERS Safety Report 7515686-2 (Version None)
Quarter: 2011Q2

REPORT INFORMATION
  Report Type: 
  Country: None (occurrence: None)
  Receive Date: 20110601
  Receipt Date: 20100715
  Transmission Date: 20111010
  Serious: No
  Sender: FDA-Public Use
  Company Number: US-PFIZER INC-2010089348

PATIENT
  Sex: Female
  Weight: 56.236 kg

DRUGS (7)
  1. VALIUM [Concomitant]
     Dosage: UNK
  2. IMDUR [Concomitant]
     Dosage: UNK
  3. CHANTIX [Suspect]
     Indication: SMOKING CESSATION THERAPY
     Dosage: 0.5 MG, 1X/DAY
     Route: 048
  4. PERCOCET [Concomitant]
     Dosage: UNK
  5. ZANAFLEX [Concomitant]
     Indication: MUSCLE RELAXANT THERAPY
     Dosage: UNK
  6. PROTONIX [Concomitant]
     Dosage: UNK
  7. SYNTHROID [Concomitant]
     Dosage: 100 MCG, DAILY

REACTIONS (2)
  - DRUG INEFFECTIVE [None]
  - PAIN [None]
